FAERS Safety Report 9909077 (Version 2)
Quarter: 2014Q1

REPORT INFORMATION
  Report Type: Spontaneous
  Country: DE (occurrence: DE)
  Receive Date: 20140219
  Receipt Date: 20140325
  Transmission Date: 20141002
  Serious: Yes (Other)
  Sender: FDA-Public Use
  Company Number: DE-JNJFOC-20140207648

PATIENT
  Sex: Male

DRUGS (8)
  1. ZYTIGA [Suspect]
     Indication: NEOPLASM PROSTATE
     Route: 048
     Dates: start: 20130924
  2. HEPARIN [Concomitant]
     Route: 065
  3. EXFORGE [Concomitant]
     Route: 065
  4. TORASEMID [Concomitant]
     Route: 065
  5. PANTOPRAZOL [Concomitant]
     Route: 065
  6. NEBIVOLOL [Concomitant]
     Route: 065
  7. GLIBENCLAMID [Concomitant]
     Route: 065
  8. PREDNISOLON [Concomitant]
     Route: 065

REACTIONS (3)
  - Gamma-glutamyltransferase increased [Recovering/Resolving]
  - Alanine aminotransferase increased [Recovering/Resolving]
  - Blood alkaline phosphatase increased [Recovering/Resolving]
